FAERS Safety Report 21556088 (Version 7)
Quarter: 2023Q1

REPORT INFORMATION
  Report Type: Report from Study
  Country: CA (occurrence: CA)
  Receive Date: 20221104
  Receipt Date: 20230303
  Transmission Date: 20230418
  Serious: Yes (Hospitalization)
  Sender: FDA-Public Use
  Company Number: CA-JNJFOC-20221034860

PATIENT
  Age: 50 Year
  Sex: Male
  Weight: 75.8 kg

DRUGS (25)
  1. TECLISTAMAB [Suspect]
     Active Substance: TECLISTAMAB
     Indication: Plasma cell myeloma
     Dosage: STEP UP 1, LAST DOSE WAS 8/SEP/2022 DOSE (284.4 MG)
     Route: 058
     Dates: start: 20220718, end: 20220908
  2. TECLISTAMAB [Suspect]
     Active Substance: TECLISTAMAB
     Indication: Pulmonary sepsis
     Route: 058
     Dates: start: 20220908, end: 20220908
  3. JNJ-64407564 [Suspect]
     Active Substance: JNJ-64407564
     Indication: Plasma cell myeloma
     Dosage: STEP UP 1 , LAST DOSE WAS 8/SEP/2022 (DOSE:75.84 MG)
     Route: 058
     Dates: start: 20220718, end: 20220908
  4. JNJ-64407564 [Suspect]
     Active Substance: JNJ-64407564
     Route: 058
     Dates: start: 20220908, end: 20220908
  5. TYLENOL EXTRA STRENGTH [Concomitant]
     Active Substance: ACETAMINOPHEN
     Indication: Arthralgia
     Route: 048
     Dates: start: 20151201
  6. TYLENOL EXTRA STRENGTH [Concomitant]
     Active Substance: ACETAMINOPHEN
     Indication: Back pain
  7. TYLENOL EXTRA STRENGTH [Concomitant]
     Active Substance: ACETAMINOPHEN
     Indication: Musculoskeletal chest pain
  8. VALACYCLOVIR HYDROCHLORIDE [Concomitant]
     Active Substance: VALACYCLOVIR HYDROCHLORIDE
     Indication: Antiviral prophylaxis
     Route: 048
     Dates: start: 20151201
  9. PANTOPRAZOLE [Concomitant]
     Active Substance: PANTOPRAZOLE
     Indication: Gastrooesophageal reflux prophylaxis
     Route: 048
     Dates: start: 20151201
  10. ASPIRIN [Concomitant]
     Active Substance: ASPIRIN
     Indication: Thrombosis prophylaxis
     Route: 048
     Dates: start: 20160801
  11. CANNABINOL [Concomitant]
     Active Substance: CANNABINOL
     Indication: Insomnia
     Route: 048
     Dates: start: 20190101
  12. METOCLOPRAMIDE [Concomitant]
     Active Substance: METOCLOPRAMIDE
     Indication: Prophylaxis of nausea and vomiting
     Route: 048
     Dates: start: 20190601
  13. HYDROMORPHONE [Concomitant]
     Active Substance: HYDROMORPHONE
     Indication: Arthralgia
     Route: 048
     Dates: start: 20191029
  14. HYDROMORPHONE [Concomitant]
     Active Substance: HYDROMORPHONE
     Indication: Back pain
     Route: 058
     Dates: start: 20221014, end: 20221015
  15. HYDROMORPHONE [Concomitant]
     Active Substance: HYDROMORPHONE
     Indication: Musculoskeletal chest pain
     Route: 048
     Dates: start: 20221015, end: 20221017
  16. HYDROMORPHONE [Concomitant]
     Active Substance: HYDROMORPHONE
     Route: 048
     Dates: start: 20221022, end: 20221026
  17. HYDROMORPHONE [Concomitant]
     Active Substance: HYDROMORPHONE
     Route: 048
     Dates: start: 20220616
  18. PERINDOPRIL [Concomitant]
     Active Substance: PERINDOPRIL
     Indication: Hypertension
     Route: 048
     Dates: start: 20220421
  19. NYSTATIN [Concomitant]
     Active Substance: NYSTATIN
     Indication: Gingival pain
     Route: 048
     Dates: start: 20220808
  20. CHOLESTYRAMINE [Concomitant]
     Active Substance: CHOLESTYRAMINE
     Indication: Diarrhoea
     Route: 048
     Dates: start: 20220824
  21. SODIUM CHLORIDE [Concomitant]
     Active Substance: SODIUM CHLORIDE
     Indication: Prophylaxis
     Route: 042
     Dates: start: 20221014, end: 20221014
  22. SODIUM CHLORIDE [Concomitant]
     Active Substance: SODIUM CHLORIDE
     Route: 042
     Dates: start: 20221014, end: 20221014
  23. IOHEXOL [Concomitant]
     Active Substance: IOHEXOL
     Indication: Premedication
     Route: 042
     Dates: start: 20221014, end: 20221014
  24. TINZAPARIN [Concomitant]
     Active Substance: TINZAPARIN
     Indication: Thrombosis prophylaxis
     Route: 058
     Dates: start: 20221014, end: 20221016
  25. TINZAPARIN [Concomitant]
     Active Substance: TINZAPARIN
     Route: 058
     Dates: start: 20221022, end: 20221026

REACTIONS (3)
  - Febrile neutropenia [Recovered/Resolved]
  - Sepsis [Recovered/Resolved]
  - Pneumococcal sepsis [Recovered/Resolved]

NARRATIVE: CASE EVENT DATE: 20221014
